FAERS Safety Report 6425085-2 (Version None)
Quarter: 2009Q4

REPORT INFORMATION
  Report Type: 
  Country: None (occurrence: None)
  Receive Date: 20091103
  Receipt Date: 20091022
  Transmission Date: 20100525
  Serious: Yes (Other)
  Sender: FDA-Public Use
  Company Number: BE-PFIZER INC-2009287594

PATIENT
  Sex: Male

DRUGS (2)
  1. GENOTONORM [Suspect]
     Indication: HYPOPITUITARISM
     Dosage: UNK
  2. TESTOSTERONE [Concomitant]
     Indication: HYPOPITUITARISM

REACTIONS (1)
  - EPILEPSY [None]
